FAERS Safety Report 13668196 (Version 1)
Quarter: 2017Q2

REPORT INFORMATION
  Report Type: Spontaneous
  Country: US (occurrence: US)
  Receive Date: 20170620
  Receipt Date: 20170620
  Transmission Date: 20170830
  Serious: No
  Sender: FDA-Public Use
  Company Number: US-PFIZER INC-2017268512

PATIENT
  Age: 37 Year
  Sex: Male
  Weight: 81 kg

DRUGS (2)
  1. METHOTREXATE SODIUM. [Suspect]
     Active Substance: METHOTREXATE SODIUM
     Dosage: 2.5 MG, 6 TABLETS ONCE A WEEK
  2. PREDNISONE. [Suspect]
     Active Substance: PREDNISONE
     Dosage: (15 MG), 10MG TABLETS ONE TABLET IN THE MORNING AND HALF TABLET AT NIGHT

REACTIONS (1)
  - Treatment failure [Unknown]
